FAERS Safety Report 4758453-5 (Version None)
Quarter: 2005Q3

REPORT INFORMATION
  Report Type: 
  Country: None (occurrence: None)
  Receive Date: 20050901
  Receipt Date: 20050408
  Transmission Date: 20060218
  Serious: Yes (Death)
  Sender: FDA-Public Use
  Company Number: NL-BOEHRINGER INGELHEIM PHARMACEUTICALS, INC.-2005-NL-00084NL

PATIENT
  Sex: Male
  Weight: 67 kg

DRUGS (5)
  1. TIPRANAVIR + RITONAVIR CO-ADMIN [Suspect]
     Indication: HIV INFECTION
     Dates: start: 20041013, end: 20050330
  2. EMTRICITABINE [Suspect]
     Indication: HIV INFECTION
     Route: 048
     Dates: start: 20041013, end: 20050330
  3. RITONAVIR [Suspect]
     Indication: HIV INFECTION
     Route: 048
     Dates: start: 20041013, end: 20050330
  4. FOSAMPRENAVIR [Suspect]
     Indication: HIV INFECTION
     Route: 048
     Dates: start: 20041013, end: 20050330
  5. T20 [Concomitant]
     Indication: HIV INFECTION
     Route: 058
     Dates: start: 20041013, end: 20050330

REACTIONS (1)
  - HEPATIC FAILURE [None]
